FAERS Safety Report 6369007-1 (Version None)
Quarter: 2009Q3

REPORT INFORMATION
  Report Type: 
  Country: None (occurrence: None)
  Receive Date: 20090922
  Receipt Date: 20090917
  Transmission Date: 20100115
  Serious: Yes (Hospitalization, Other)
  Sender: FDA-Public Use
  Company Number: US-ELI_LILLY_AND_COMPANY-US200909004092

PATIENT
  Age: 70 Year
  Sex: Female

DRUGS (10)
  1. HUMULIN 70/30 [Suspect]
     Dosage: 35 U, EACH MORNING
     Dates: start: 20090916
  2. HUMULIN 70/30 [Suspect]
     Dosage: 30 U, EACH EVENING
     Dates: start: 20090916
  3. HUMULIN 70/30 [Suspect]
  4. FUROSEMIDE [Concomitant]
  5. INDAPAMIDE [Concomitant]
  6. PLAVIX [Concomitant]
  7. ASPIRIN [Concomitant]
  8. METOPROLOL TARTRATE [Concomitant]
  9. POTASSIUM CHLORIDE [Concomitant]
  10. ISOSORBIDE [Concomitant]

REACTIONS (13)
  - ARTHRALGIA [None]
  - ARTHRITIS [None]
  - ATRIOVENTRICULAR BLOCK [None]
  - BLOOD GLUCOSE DECREASED [None]
  - BLOOD GLUCOSE INCREASED [None]
  - CATARACT [None]
  - CORONARY ARTERY OCCLUSION [None]
  - DEPRESSION [None]
  - HYPERSOMNIA [None]
  - INCORRECT DOSE ADMINISTERED [None]
  - STRESS [None]
  - VISUAL ACUITY REDUCED [None]
  - WRONG TECHNIQUE IN DRUG USAGE PROCESS [None]
